FAERS Safety Report 15962595 (Version 1)
Quarter: 2019Q1

REPORT INFORMATION
  Report Type: Report from Study
  Country: US (occurrence: US)
  Receive Date: 20190214
  Receipt Date: 20190214
  Transmission Date: 20190417
  Serious: Yes (Hospitalization, Other)
  Sender: FDA-Public Use
  Company Number: US-GILEAD-2019-0390387

PATIENT
  Age: 32 Year
  Sex: Male

DRUGS (42)
  1. CREON [Concomitant]
     Active Substance: PANCRELIPASE AMYLASE\PANCRELIPASE LIPASE\PANCRELIPASE PROTEASE
  2. SMZ-TMP [Concomitant]
     Active Substance: SULFAMETHOXAZOLE\TRIMETHOPRIM
  3. METOPROLIN [Concomitant]
  4. VITAMIN C [Concomitant]
     Active Substance: ASCORBIC ACID
  5. CIPROFLOXACIN. [Concomitant]
     Active Substance: CIPROFLOXACIN
  6. ORKAMBI [Concomitant]
     Active Substance: IVACAFTOR\LUMACAFTOR
  7. FURSOEMIDE [Concomitant]
  8. DOK [Concomitant]
     Active Substance: DOCUSATE SODIUM
  9. NOVOLIN [Concomitant]
     Active Substance: INSULIN HUMAN
  10. ENOXAPARIN [Concomitant]
     Active Substance: ENOXAPARIN
  11. MULTI-VIT [Concomitant]
     Active Substance: VITAMINS
  12. PHYTONADIONE. [Concomitant]
     Active Substance: PHYTONADIONE
  13. ALBUTOL [Concomitant]
  14. DRONABOL [Concomitant]
  15. EFFXOR [Concomitant]
  16. PANTOPRAZOLE [Concomitant]
     Active Substance: PANTOPRAZOLE
  17. TRAMADOL. [Concomitant]
     Active Substance: TRAMADOL
  18. MIRTAZAPINE. [Concomitant]
     Active Substance: MIRTAZAPINE
  19. ONDANSETRON [Concomitant]
     Active Substance: ONDANSETRON
  20. LORAZEPAM. [Concomitant]
     Active Substance: LORAZEPAM
  21. AZITHROMYCIN ANHYDROUS. [Concomitant]
     Active Substance: AZITHROMYCIN ANHYDROUS
  22. ZINC SULFATE [Concomitant]
     Active Substance: ZINC SULFATE\ZINC SULFATE ANHYDROUS
  23. PULMOZYME [Concomitant]
     Active Substance: DORNASE ALFA
  24. VORICONAZOLE. [Concomitant]
     Active Substance: VORICONAZOLE
  25. VALGANCICLOVIR. [Concomitant]
     Active Substance: VALGANCICLOVIR
  26. PREDNISONE. [Concomitant]
     Active Substance: PREDNISONE
  27. TACROLIMUS. [Concomitant]
     Active Substance: TACROLIMUS
  28. LANTUS [Concomitant]
     Active Substance: INSULIN GLARGINE
  29. NOVOLOG [Concomitant]
     Active Substance: INSULIN ASPART
  30. LINEOLID [Concomitant]
  31. AZTREONAM LYSINE [Suspect]
     Active Substance: AZTREONAM LYSINE
     Indication: CYSTIC FIBROSIS
     Dosage: 75 MG, TID
     Route: 055
     Dates: start: 20170822
  32. VENLAFAXINE [Concomitant]
     Active Substance: VENLAFAXINE HYDROCHLORIDE
  33. TOBRAMYCIN. [Concomitant]
     Active Substance: TOBRAMYCIN
  34. FOLIC ACID. [Concomitant]
     Active Substance: FOLIC ACID
  35. CALCITRAT [Concomitant]
  36. MYCOPHENOLATE [Concomitant]
     Active Substance: MYCOPHENOLIC ACID
  37. MAGNSIUM [Concomitant]
  38. POT CHLORIDE [Concomitant]
     Active Substance: POTASSIUM CHLORIDE
  39. ALPRAZOLAM. [Concomitant]
     Active Substance: ALPRAZOLAM
  40. VITAMIN D3 [Concomitant]
     Active Substance: CHOLECALCIFEROL
  41. MINOCYCLINE [Concomitant]
     Active Substance: MINOCYCLINE\MINOCYCLINE HYDROCHLORIDE
  42. RITALIN [Concomitant]
     Active Substance: METHYLPHENIDATE HYDROCHLORIDE

REACTIONS (1)
  - Lung transplant [Unknown]

NARRATIVE: CASE EVENT DATE: 20190115
